FAERS Safety Report 13758590 (Version 2)
Quarter: 2017Q4

REPORT INFORMATION
  Report Type: Spontaneous
  Country: CN (occurrence: CN)
  Receive Date: 20170717
  Receipt Date: 20171031
  Transmission Date: 20180320
  Serious: Yes (Hospitalization, Other)
  Sender: FDA-Public Use
  Company Number: CN-SUN PHARMACEUTICAL INDUSTRIES LTD-2017R1-145563

PATIENT
  Age: 34 Year
  Sex: Female

DRUGS (5)
  1. ETHAMBUTOL [Suspect]
     Active Substance: ETHAMBUTOL HYDROCHLORIDE
     Indication: DISSEMINATED TUBERCULOSIS
     Dosage: UNK
     Route: 065
     Dates: start: 20130716
  2. ISONIAZID. [Suspect]
     Active Substance: ISONIAZID
     Indication: DISSEMINATED TUBERCULOSIS
     Dosage: UNK
     Route: 065
     Dates: start: 20130712, end: 2015
  3. AMIKACIN [Suspect]
     Active Substance: AMIKACIN
     Indication: DISSEMINATED TUBERCULOSIS
     Dosage: UNK
     Route: 065
     Dates: start: 20130716, end: 2015
  4. RIFAPENTINE [Suspect]
     Active Substance: RIFAPENTINE
     Indication: DISSEMINATED TUBERCULOSIS
     Dosage: UNK
     Route: 065
     Dates: start: 20130716, end: 2015
  5. GLYCYRRHIZIN [Concomitant]
     Active Substance: GLYCYRRHIZIN
     Indication: HEPATIC FUNCTION ABNORMAL
     Dosage: UNK
     Route: 065
     Dates: start: 201307

REACTIONS (1)
  - Disease progression [Unknown]

NARRATIVE: CASE EVENT DATE: 2013
